FAERS Safety Report 7478819-2 (Version None)
Quarter: 2011Q2

REPORT INFORMATION
  Report Type: 
  Country: None (occurrence: None)
  Receive Date: 20110513
  Receipt Date: 20110504
  Transmission Date: 20111010
  Serious: Yes (Other)
  Sender: FDA-Public Use
  Company Number: BR-ROCHE-775450

PATIENT
  Sex: Male

DRUGS (2)
  1. ISOTRETINOIN [Suspect]
     Route: 065
     Dates: start: 20090101, end: 20090101
  2. ISOTRETINOIN [Suspect]
     Route: 065
     Dates: start: 20100101

REACTIONS (2)
  - ACTIVATED PARTIAL THROMBOPLASTIN TIME ABNORMAL [None]
  - PROTHROMBIN LEVEL ABNORMAL [None]
